FAERS Safety Report 22244903 (Version 1)
Quarter: 2023Q2

REPORT INFORMATION
  Report Type: Spontaneous
  Country: LV (occurrence: LV)
  Receive Date: 20230424
  Receipt Date: 20230424
  Transmission Date: 20230722
  Serious: Yes (Other)
  Sender: FDA-Public Use
  Company Number: LV-PFIZER INC-2019504915

PATIENT
  Age: 73 Year
  Sex: Female

DRUGS (18)
  1. LORATADINE [Suspect]
     Active Substance: LORATADINE
     Dosage: UNK
     Route: 065
  2. PREDNISOLONE [Suspect]
     Active Substance: PREDNISOLONE
     Indication: Skin lesion
     Dosage: 0.5 MG/KG, DAILY FOR 1 TO 2 WEEKS (UNTIL A MARKED IMPROVEMENT IS SEEN)
     Route: 048
     Dates: start: 2019
  3. PREDNISOLONE [Suspect]
     Active Substance: PREDNISOLONE
     Indication: Vasculitis
     Route: 065
  4. METHYLPREDNISOLONE [Suspect]
     Active Substance: METHYLPREDNISOLONE
     Indication: Skin lesion
     Dosage: 36 MG, 1X/DAY
     Route: 048
  5. METHYLPREDNISOLONE [Suspect]
     Active Substance: METHYLPREDNISOLONE
     Indication: Vasculitis
     Route: 065
  6. METHYLPREDNISOLONE SODIUM SUCCINATE [Suspect]
     Active Substance: METHYLPREDNISOLONE SODIUM SUCCINATE
     Indication: Skin lesion
     Dosage: 250 MG, SINGLE
     Route: 042
  7. METHYLPREDNISOLONE SODIUM SUCCINATE [Suspect]
     Active Substance: METHYLPREDNISOLONE SODIUM SUCCINATE
     Indication: Vasculitis
     Route: 065
  8. BISOPROLOL\PERINDOPRIL [Concomitant]
     Active Substance: BISOPROLOL\PERINDOPRIL
     Route: 065
  9. DIGOXIN [Concomitant]
     Active Substance: DIGOXIN
     Route: 065
  10. METFORMIN [Concomitant]
     Active Substance: METFORMIN HYDROCHLORIDE
     Route: 065
  11. TORSEMIDE [Concomitant]
     Active Substance: TORSEMIDE
     Route: 065
  12. PANTOPRAZOLE [Concomitant]
     Active Substance: PANTOPRAZOLE
     Route: 065
  13. SPIRONOLACTONE [Concomitant]
     Active Substance: SPIRONOLACTONE
     Route: 065
  14. SILDENAFIL [Concomitant]
     Active Substance: SILDENAFIL
     Route: 065
  15. WARFARIN [Concomitant]
     Active Substance: WARFARIN
     Route: 065
  16. ATORVASTATIN [Concomitant]
     Active Substance: ATORVASTATIN
     Route: 065
  17. ALLOPURINOL [Concomitant]
     Active Substance: ALLOPURINOL
     Route: 065
  18. METHIMAZOLE [Concomitant]
     Active Substance: METHIMAZOLE
     Route: 065

REACTIONS (3)
  - Myopathy [Recovering/Resolving]
  - Pancreatitis [Recovering/Resolving]
  - Rash erythematous [Unknown]

NARRATIVE: CASE EVENT DATE: 20190101
